FAERS Safety Report 13445540 (Version 1)
Quarter: 2017Q2

REPORT INFORMATION
  Report Type: Spontaneous
  Country: US (occurrence: US)
  Receive Date: 20170415
  Receipt Date: 20170415
  Transmission Date: 20170830
  Serious: No
  Sender: FDA-Public Use
  Company Number: US-BION-005848

PATIENT
  Age: 51 Year
  Sex: Female
  Weight: 78.18 kg

DRUGS (3)
  1. ADDERALL [Concomitant]
     Active Substance: AMPHETAMINE ASPARTATE\AMPHETAMINE SULFATE\DEXTROAMPHETAMINE SACCHARATE\DEXTROAMPHETAMINE SULFATE
  2. ALEVE [Suspect]
     Active Substance: NAPROXEN SODIUM
     Indication: HEADACHE
     Route: 048
  3. ACETYLSALICYLIC ACID [Concomitant]
     Active Substance: ASPIRIN

REACTIONS (5)
  - Poor quality drug administered [Not Recovered/Not Resolved]
  - Product physical consistency issue [Unknown]
  - Incorrect dose administered [Not Recovered/Not Resolved]
  - Product odour abnormal [Unknown]
  - Drug ineffective [Not Recovered/Not Resolved]
